FAERS Safety Report 11045055 (Version 3)
Quarter: 2015Q2

REPORT INFORMATION
  Report Type: Spontaneous
  Country: US (occurrence: US)
  Receive Date: 20150417
  Receipt Date: 20150429
  Transmission Date: 20150821
  Serious: Yes (Other)
  Sender: FDA-Public Use
  Company Number: US-LUNDBECK-DKLU1111333

PATIENT
  Age: 7 Year
  Sex: Male

DRUGS (4)
  1. KEPPRA [Concomitant]
     Active Substance: LEVETIRACETAM
     Indication: PRODUCT USED FOR UNKNOWN INDICATION
     Dates: start: 2010
  2. ONFI [Suspect]
     Active Substance: CLOBAZAM
     Route: 065
     Dates: start: 20150217
  3. VIMPAT [Concomitant]
     Active Substance: LACOSAMIDE
     Indication: PRODUCT USED FOR UNKNOWN INDICATION
     Dates: start: 2011
  4. ONFI [Suspect]
     Active Substance: CLOBAZAM
     Indication: EPILEPSY
     Route: 048

REACTIONS (2)
  - Complex partial seizures [Unknown]
  - Seizure [Unknown]

NARRATIVE: CASE EVENT DATE: 20150217
